FAERS Safety Report 20807082 (Version 1)
Quarter: 2022Q2

REPORT INFORMATION
  Report Type: Spontaneous
  Country: US (occurrence: US)
  Receive Date: 20220510
  Receipt Date: 20220510
  Transmission Date: 20220721
  Serious: No
  Sender: FDA-Public Use
  Company Number: US-AMGEN-USASP2022073081

PATIENT
  Age: 66 Year
  Sex: Female
  Weight: 53.9 kg

DRUGS (4)
  1. PROLIA [Suspect]
     Active Substance: DENOSUMAB
     Indication: Ewing^s sarcoma
     Dosage: 60 MILLIGRAM
     Route: 058
  2. VINCRISTINE [Concomitant]
     Active Substance: VINCRISTINE
     Dosage: 2 MILLIGRAM
     Route: 042
  3. DOXORUBICIN [Concomitant]
     Active Substance: DOXORUBICIN
     Dosage: 113 MILLIGRAM
     Route: 042
  4. CYCLOPHOSPHAMIDE [Concomitant]
     Active Substance: CYCLOPHOSPHAMIDE
     Dosage: 1800 MILLIGRAM
     Route: 042

REACTIONS (2)
  - Infrequent bowel movements [Unknown]
  - Off label use [Unknown]
